FAERS Safety Report 17462796 (Version 1)
Quarter: 2020Q1

REPORT INFORMATION
  Report Type: Spontaneous
  Country: US (occurrence: US)
  Receive Date: 20191103
  Receipt Date: 20191103
  Transmission Date: 20200409
  Serious: Yes (Hospitalization)
  Sender: FDA-Public Use
  Company Number: None

PATIENT
  Age: 22 Year
  Sex: Male

DRUGS (1)
  1. THC/NICOTINE VAPE CARTRIDGE [Suspect]
     Active Substance: .DELTA.8-TETRAHYDROCANNABINOL\DEVICE\HERBALS\NICOTINE

REACTIONS (4)
  - Malaise [None]
  - Product tampering [None]
  - Cough [None]
  - Pulmonary oedema [None]
